FAERS Safety Report 5987607-5 (Version None)
Quarter: 2008Q4

REPORT INFORMATION
  Report Type: 
  Country: None (occurrence: None)
  Receive Date: 20081209
  Receipt Date: 20081201
  Transmission Date: 20090506
  Serious: Yes (Hospitalization)
  Sender: FDA-Public Use
  Company Number: US-WYE-H07025008

PATIENT
  Age: 75 Year
  Sex: Female
  Weight: 59 kg

DRUGS (2)
  1. TEMSIROLIMUS [Suspect]
     Indication: MULTIPLE MYELOMA
     Route: 065
     Dates: start: 20081117, end: 20081124
  2. VELCADE [Suspect]
     Indication: MULTIPLE MYELOMA
     Route: 065
     Dates: start: 20081117, end: 20081124

REACTIONS (9)
  - AMYLOIDOSIS [None]
  - ASCITES [None]
  - DYSPNOEA [None]
  - FEBRILE NEUTROPENIA [None]
  - GENERALISED OEDEMA [None]
  - HYPOTENSION [None]
  - OEDEMA PERIPHERAL [None]
  - TROPONIN INCREASED [None]
  - VENTRICULAR HYPERTROPHY [None]
